FAERS Safety Report 6841019-0 (Version None)
Quarter: 2010Q3

REPORT INFORMATION
  Report Type: 
  Country: None (occurrence: None)
  Receive Date: 20100714
  Receipt Date: 20070625
  Transmission Date: 20110219
  Serious: No
  Sender: FDA-Public Use
  Company Number: US-PFIZER INC-2007052940

PATIENT
  Sex: Female
  Weight: 71.2 kg

DRUGS (6)
  1. CHANTIX [Suspect]
     Indication: SMOKING CESSATION THERAPY
     Route: 048
     Dates: start: 20070619
  2. ALEVE (CAPLET) [Suspect]
     Indication: PAIN
     Dates: start: 20070601
  3. ALEVE (CAPLET) [Suspect]
     Indication: TENDONITIS
  4. PREVACID [Concomitant]
  5. MULTI-VITAMINS [Concomitant]
  6. SPIRIVA [Concomitant]

REACTIONS (4)
  - COGNITIVE DISORDER [None]
  - DISTURBANCE IN ATTENTION [None]
  - DIZZINESS [None]
  - FEELING ABNORMAL [None]
